FAERS Safety Report 7145496-X (Version None)
Quarter: 2010Q4

REPORT INFORMATION
  Report Type: 
  Country: None (occurrence: None)
  Receive Date: 20101208
  Receipt Date: 20041221
  Transmission Date: 20110411
  Serious: Yes (Death)
  Sender: FDA-Public Use
  Company Number: NL-ROCHE-746114

PATIENT

DRUGS (1)
  1. XELODA [Suspect]
     Route: 048
     Dates: start: 20040101

REACTIONS (1)
  - MUCOSAL INFLAMMATION [None]
